FAERS Safety Report 10021338 (Version 1)
Quarter: 2014Q1

REPORT INFORMATION
  Report Type: Spontaneous
  Country: US (occurrence: None)
  Receive Date: 20140319
  Receipt Date: 20140319
  Transmission Date: 20141002
  Serious: Yes (Other)
  Sender: FDA-Public Use
  Company Number: None

PATIENT
  Age: 36 Year
  Sex: Female
  Weight: 54.43 kg

DRUGS (1)
  1. HYDROQUINONE [Suspect]
     Indication: SOLAR LENTIGO
     Dosage: 1 PAD TWICE DAILY  APPLIED TO A SURFACE, USUALLY THE SKIN
     Dates: start: 20140314, end: 20140314

REACTIONS (5)
  - Urticaria [None]
  - Swelling [None]
  - Eye swelling [None]
  - Product compounding quality issue [None]
  - Intentional overdose [None]
